FAERS Safety Report 4630746-1 (Version None)
Quarter: 2005Q2

REPORT INFORMATION
  Report Type: 
  Country: None (occurrence: None)
  Receive Date: 20050408
  Receipt Date: 20050317
  Transmission Date: 20051028
  Serious: Yes (Other)
  Sender: FDA-Public Use
  Company Number: JP-ROCHE-399721

PATIENT
  Age: 72 Year
  Sex: Female

DRUGS (9)
  1. TAMIFLU [Suspect]
     Indication: INFLUENZA
     Route: 048
     Dates: start: 20050228, end: 20050302
  2. UNSPECIFIED DRUG [Concomitant]
     Indication: DRUG USE FOR UNKNOWN INDICATION
     Dosage: DRUG NAME REPORTED AS ^MAO-BUSHI-SAISHIN-TO^
     Route: 048
     Dates: start: 20050225, end: 20050228
  3. UNSPECIFIED DRUG [Concomitant]
     Dosage: DRUG NAME REPORTED AS ^KIKYO-SEKKO^
     Route: 048
     Dates: start: 20050225, end: 20050228
  4. SAIREI-TO [Concomitant]
     Indication: DRUG USE FOR UNKNOWN INDICATION
     Route: 048
     Dates: start: 20050228, end: 20050302
  5. BLOPRESS [Concomitant]
     Indication: DRUG USE FOR UNKNOWN INDICATION
     Route: 048
     Dates: end: 20050302
  6. EFONIDIPINE [Concomitant]
     Indication: DRUG USE FOR UNKNOWN INDICATION
     Dosage: DRUG NAME REPORTED AS ^LANDEL 10_20^
     Route: 048
     Dates: end: 20050302
  7. FLUITRAN [Concomitant]
     Indication: DRUG USE FOR UNKNOWN INDICATION
     Route: 048
     Dates: end: 20050302
  8. ALDACTONE A [Concomitant]
     Indication: DRUG USE FOR UNKNOWN INDICATION
     Route: 048
     Dates: end: 20050302
  9. LIPANTIL [Concomitant]
     Indication: DRUG USE FOR UNKNOWN INDICATION
     Route: 048
     Dates: end: 20050302

REACTIONS (9)
  - ARTHRALGIA [None]
  - BLOOD PRESSURE INCREASED [None]
  - HEPATIC FUNCTION ABNORMAL [None]
  - JAUNDICE [None]
  - LOBAR PNEUMONIA [None]
  - MALAISE [None]
  - RENAL IMPAIRMENT [None]
  - URINE OUTPUT DECREASED [None]
  - VOMITING [None]
